FAERS Safety Report 24937853 (Version 11)
Quarter: 2025Q2

REPORT INFORMATION
  Report Type: Spontaneous
  Country: US (occurrence: US)
  Receive Date: 20250206
  Receipt Date: 20250520
  Transmission Date: 20250716
  Serious: Yes (Death, Hospitalization)
  Sender: NOVARTIS
  Company Number: US-002147023-NVSC2025US018358

PATIENT
  Sex: Male

DRUGS (5)
  1. ENTRESTO [Suspect]
     Active Substance: SACUBITRIL\VALSARTAN
     Indication: Product used for unknown indication
     Route: 065
  2. ENTRESTO [Suspect]
     Active Substance: SACUBITRIL\VALSARTAN
     Route: 065
  3. HYDROCHLOROTHIAZIDE [Concomitant]
     Active Substance: HYDROCHLOROTHIAZIDE
     Indication: Product used for unknown indication
     Route: 065
  4. FUROSEMIDE [Concomitant]
     Active Substance: FUROSEMIDE
     Indication: Product used for unknown indication
     Route: 065
  5. MIDODRINE [Concomitant]
     Active Substance: MIDODRINE
     Indication: Blood pressure measurement
     Route: 065

REACTIONS (6)
  - Death [Fatal]
  - Acute kidney injury [Unknown]
  - Hypotension [Unknown]
  - Loss of consciousness [Unknown]
  - Product counterfeit [Unknown]
  - Manufacturing issue [Unknown]
